FAERS Safety Report 7994322-5 (Version None)
Quarter: 2011Q4

REPORT INFORMATION
  Report Type: 
  Country: None (occurrence: None)
  Receive Date: 20111220
  Receipt Date: 20110110
  Transmission Date: 20120403
  Serious: No
  Sender: FDA-Public Use
  Company Number: US-GLAXOSMITHKLINE-A0850669A

PATIENT
  Age: 58 Year
  Sex: Male

DRUGS (14)
  1. SORIATANE [Suspect]
     Indication: PRODUCT USED FOR UNKNOWN INDICATION
     Dosage: 125MG PER DAY
     Route: 048
     Dates: start: 20070801
  2. PREZISTA [Concomitant]
  3. NORVIR [Concomitant]
  4. UNKNOWN [Concomitant]
  5. FOSAMAX [Concomitant]
  6. INTELENCE [Concomitant]
  7. ISENTRESS [Concomitant]
  8. UNKNOWN [Concomitant]
  9. ACYCLOVIR [Concomitant]
  10. FLOMAX [Concomitant]
  11. UNKNOWN [Concomitant]
  12. TIMOLOL MALEATE [Concomitant]
  13. PROTONIX [Concomitant]
  14. UNKNOWN [Concomitant]

REACTIONS (9)
  - VISION BLURRED [None]
  - DRUG INEFFECTIVE [None]
  - LIP EXFOLIATION [None]
  - BLOOD CHOLESTEROL INCREASED [None]
  - PHOTOPHOBIA [None]
  - CHAPPED LIPS [None]
  - ALOPECIA [None]
  - LIPIDS INCREASED [None]
  - BLOOD TRIGLYCERIDES INCREASED [None]
